FAERS Safety Report 10054923 (Version 1)
Quarter: 2014Q2

REPORT INFORMATION
  Report Type: Spontaneous
  Country: JP (occurrence: JP)
  Receive Date: 20140402
  Receipt Date: 20140402
  Transmission Date: 20141212
  Serious: Yes (Hospitalization)
  Sender: FDA-Public Use
  Company Number: PHHY2014JP037850

PATIENT
  Age: 85 Year
  Sex: Female

DRUGS (7)
  1. RIFAMPICIN SANDOZ [Suspect]
     Indication: PULMONARY TUBERCULOSIS
     Route: 048
  2. ISONIAZID [Suspect]
     Indication: PULMONARY TUBERCULOSIS
  3. ETHAMBUTOL HYDROCHLORIDE [Suspect]
     Indication: PULMONARY TUBERCULOSIS
     Route: 048
  4. PYRAZINAMIDE [Suspect]
     Indication: PULMONARY TUBERCULOSIS
     Route: 048
  5. STREPTOMYCIN SULFATE [Concomitant]
     Indication: PULMONARY TUBERCULOSIS
  6. LEVOFLOXACIN HYDRATE [Concomitant]
     Indication: PULMONARY TUBERCULOSIS
     Route: 048
  7. PROTHIONAMIDE [Concomitant]
     Indication: PULMONARY TUBERCULOSIS
     Route: 048

REACTIONS (2)
  - Liver disorder [Unknown]
  - Pyrexia [Unknown]
